FAERS Safety Report 16940245 (Version 2)
Quarter: 2019Q4

REPORT INFORMATION
  Report Type: Spontaneous
  Country: EG (occurrence: EG)
  Receive Date: 20191021
  Receipt Date: 20191106
  Transmission Date: 20200122
  Serious: Yes (Other)
  Sender: FDA-Public Use
  Company Number: EG-ACCORD-157005

PATIENT
  Age: 65 Year
  Sex: Female

DRUGS (1)
  1. ROSUVASTATIN. [Suspect]
     Active Substance: ROSUVASTATIN
     Indication: HYPERLIPIDAEMIA
     Dosage: 2 MONTHS
     Route: 048
     Dates: start: 201803, end: 201806

REACTIONS (1)
  - Neurotrophic keratopathy [Recovered/Resolved]

NARRATIVE: CASE EVENT DATE: 201806
